FAERS Safety Report 18738680 (Version 1)
Quarter: 2021Q1

REPORT INFORMATION
  Report Type: Spontaneous
  Country: SE (occurrence: SE)
  Receive Date: 20210114
  Receipt Date: 20210114
  Transmission Date: 20210419
  Serious: Yes (Other)
  Sender: FDA-Public Use
  Company Number: SE-TEVA-2021-SE-1868013

PATIENT
  Sex: Female

DRUGS (1)
  1. PREDNISOLONE ACTAVIS [Suspect]
     Active Substance: PREDNISOLONE
     Route: 048

REACTIONS (3)
  - Osteonecrosis of jaw [Unknown]
  - Pain [Not Recovered/Not Resolved]
  - Ill-defined disorder [Not Recovered/Not Resolved]
